FAERS Safety Report 8026346-6 (Version None)
Quarter: 2012Q1

REPORT INFORMATION
  Report Type: 
  Country: None (occurrence: None)
  Receive Date: 20120105
  Receipt Date: 20111025
  Transmission Date: 20120608
  Serious: Yes (Hospitalization)
  Sender: FDA-Public Use
  Company Number: US-ABBOTT-11P-163-0868032-00

PATIENT
  Sex: Female
  Weight: 79.45 kg

DRUGS (2)
  1. SYNTHROID [Suspect]
     Dates: start: 20111001
  2. SYNTHROID [Suspect]
     Indication: HYPOTHYROIDISM
     Dates: end: 20111007

REACTIONS (1)
  - MYOCARDIAL INFARCTION [None]
